FAERS Safety Report 13527019 (Version 1)
Quarter: 2017Q2

REPORT INFORMATION
  Report Type: Spontaneous
  Country: US (occurrence: US)
  Receive Date: 20170509
  Receipt Date: 20170509
  Transmission Date: 20170830
  Serious: Yes (Other)
  Sender: FDA-Public Use
  Company Number: None

PATIENT
  Age: 39 Year
  Sex: Female
  Weight: 87.75 kg

DRUGS (2)
  1. LAMOTRIGINE EXTENDED RELEASE [Suspect]
     Active Substance: LAMOTRIGINE
     Indication: SEIZURE
     Dosage: ?          QUANTITY:3 TABLET(S);?
     Route: 048
     Dates: start: 20170430, end: 20170509
  2. IBUPROFEN. [Concomitant]
     Active Substance: IBUPROFEN

REACTIONS (2)
  - Seizure [None]
  - Product substitution issue [None]

NARRATIVE: CASE EVENT DATE: 20170506
